FAERS Safety Report 20918927 (Version 1)
Quarter: 2022Q2

REPORT INFORMATION
  Report Type: Spontaneous
  Country: US (occurrence: None)
  Receive Date: 20220603
  Receipt Date: 20220603
  Transmission Date: 20220721
  Serious: No
  Sender: FDA-Public Use
  Company Number: None

PATIENT
  Sex: Female

DRUGS (2)
  1. LUPRON [Suspect]
     Active Substance: LEUPROLIDE ACETATE
     Indication: Pelvic pain
     Dosage: FREQUENCY : MONTHLY;?
     Route: 030
     Dates: start: 20220124
  2. LUPRON [Suspect]
     Active Substance: LEUPROLIDE ACETATE
     Indication: Perineal pain

REACTIONS (2)
  - Headache [None]
  - Pain [None]

NARRATIVE: CASE EVENT DATE: 20220301
